FAERS Safety Report 4505960-6 (Version None)
Quarter: 2004Q4

REPORT INFORMATION
  Report Type: 
  Country: None (occurrence: None)
  Receive Date: 20041119
  Receipt Date: 20041113
  Transmission Date: 20050328
  Serious: Yes (Other)
  Sender: FDA-Public Use
  Company Number: PHBS2004BE15423

PATIENT
  Age: 56 Year
  Sex: Male

DRUGS (2)
  1. LESCOL XL [Suspect]
     Indication: HYPERCHOLESTEROLAEMIA
     Dosage: 80 MG/DAY
     Route: 048
     Dates: start: 20030401, end: 20041101
  2. VALTRAN [Concomitant]

REACTIONS (1)
  - TENDON RUPTURE [None]
